FAERS Safety Report 9292774 (Version 1)
Quarter: 2013Q1

REPORT INFORMATION
  Report Type: Spontaneous
  Country: US (occurrence: None)
  Receive Date: 20121212
  Receipt Date: 20121212
  Transmission Date: 20140127
  Serious: No
  Sender: FDA-Public Use
  Company Number: 1210USA009235

PATIENT
  Age: 48 Year
  Sex: Male
  Weight: 76.2 kg

DRUGS (5)
  1. PEGINTRON [Suspect]
  2. RIBAVIRIN [Suspect]
     Route: 048
  3. VICTRELIS [Suspect]
  4. TYLENOL(ACETAMINOPHEN) [Concomitant]
  5. VITAMINS(UNSPECIFIED)(VITAMINS)(UNSPECIFIED) [Concomitant]

REACTIONS (3)
  - Injection site rash [None]
  - Contusion [None]
  - Influenza like illness [None]
